FAERS Safety Report 15574929 (Version 2)
Quarter: 2018Q4

REPORT INFORMATION
  Report Type: Spontaneous
  Country: DE (occurrence: DE)
  Receive Date: 20181101
  Receipt Date: 20181227
  Transmission Date: 20190205
  Serious: Yes (Other)
  Sender: FDA-Public Use
  Company Number: DE-AMGEN-DEUSP2018151354

PATIENT
  Age: 67 Year
  Sex: Female
  Weight: 82 kg

DRUGS (6)
  1. PARSABIV [Suspect]
     Active Substance: ETELCALCETIDE HYDROCHLORIDE
     Indication: HYPERPARATHYROIDISM SECONDARY
     Dosage: 12.5 MG, UNK
     Route: 065
  2. PARSABIV [Suspect]
     Active Substance: ETELCALCETIDE HYDROCHLORIDE
     Dosage: 15 MG, 3 TIMES/WK
     Route: 065
     Dates: end: 20181022
  3. PARSABIV [Suspect]
     Active Substance: ETELCALCETIDE HYDROCHLORIDE
     Dosage: 15 MG, 3 TIMES/WK
     Route: 042
     Dates: start: 20180216, end: 20181112
  4. PARSABIV [Suspect]
     Active Substance: ETELCALCETIDE HYDROCHLORIDE
     Dosage: 15 MG, 3 TIMES/WK
     Route: 042
     Dates: start: 20180903, end: 20181112
  5. DEKRISTOL [Concomitant]
     Active Substance: CHOLECALCIFEROL
     Dosage: 20000 UNK, UNK
     Dates: start: 20181215
  6. CALCIUM ACETATE NEPHRO [Concomitant]
     Active Substance: CALCIUM ACETATE
     Dosage: 500 MG, UNK
     Dates: start: 20161215

REACTIONS (6)
  - Electrocardiogram QT prolonged [Unknown]
  - Defect conduction intraventricular [Unknown]
  - Ventricular extrasystoles [Unknown]
  - Myocardial ischaemia [Unknown]
  - Left ventricular hypertrophy [Unknown]
  - Heart rate irregular [Recovered/Resolved]

NARRATIVE: CASE EVENT DATE: 201803
